FAERS Safety Report 24099647 (Version 1)
Quarter: 2024Q3

REPORT INFORMATION
  Report Type: Spontaneous
  Country: US (occurrence: US)
  Receive Date: 20240716
  Receipt Date: 20240716
  Transmission Date: 20241017
  Serious: No
  Sender: NOVO NORDISK
  Company Number: US-NOVOPROD-1215600

PATIENT

DRUGS (1)
  1. OZEMPIC [Suspect]
     Active Substance: SEMAGLUTIDE
     Indication: Product used for unknown indication
     Dosage: UNK
     Route: 058

REACTIONS (6)
  - Skin swelling [Unknown]
  - Eye pruritus [Unknown]
  - Pruritus [Unknown]
  - Urticaria [Unknown]
  - Injection site bruising [Unknown]
  - Injection site erythema [Unknown]
